FAERS Safety Report 9459411 (Version 1)
Quarter: 2013Q3

REPORT INFORMATION
  Report Type: Report from Study
  Country: CN (occurrence: CN)
  Receive Date: 20130815
  Receipt Date: 20130815
  Transmission Date: 20140515
  Serious: Yes (Other)
  Sender: FDA-Public Use
  Company Number: CN-ROCHE-1262141

PATIENT
  Sex: 0

DRUGS (5)
  1. CAPECITABINE [Suspect]
     Indication: RECTAL CANCER
     Dosage: ON DAYS 1-14
     Route: 065
  2. OXALIPLATIN [Suspect]
     Indication: RECTAL CANCER
     Dosage: ON DAY 1
     Route: 065
  3. LEUCOVORIN [Suspect]
     Indication: RECTAL CANCER
     Dosage: ON DAY 1
     Route: 065
  4. FLUOROURACIL [Suspect]
     Indication: RECTAL CANCER
     Dosage: ON DAY 1
     Route: 040
  5. FLUOROURACIL [Suspect]
     Dosage: FOR 2 DAYS
     Route: 042

REACTIONS (10)
  - Nausea [Unknown]
  - Vomiting [Unknown]
  - Diarrhoea [Unknown]
  - Abdominal pain [Unknown]
  - Alanine aminotransferase increased [Unknown]
  - Diarrhoea [Unknown]
  - Leukopenia [Unknown]
  - Neutropenia [Unknown]
  - Anaemia [Unknown]
  - Proctalgia [Unknown]
